FAERS Safety Report 4891654-4 (Version None)
Quarter: 2005Q4

REPORT INFORMATION
  Report Type: 
  Country: None (occurrence: None)
  Receive Date: 20051220
  Receipt Date: 20050920
  Transmission Date: 20060501
  Serious: Yes (Other)
  Sender: FDA-Public Use
  Company Number: 418585

PATIENT
  Age: 69 Year
  Sex: Female
  Weight: 108.9 kg

DRUGS (3)
  1. BONIVA [Suspect]
     Indication: OSTEOPOROSIS
     Dosage: 150 MG 1 PER MONTH ORAL
     Route: 048
     Dates: start: 20050515, end: 20050915
  2. LASIX [Concomitant]
  3. PREDNISONE [Concomitant]

REACTIONS (1)
  - AMNESIA [None]
